FAERS Safety Report 5140715-3 (Version None)
Quarter: 2006Q4

REPORT INFORMATION
  Report Type: 
  Country: None (occurrence: None)
  Receive Date: 20061025
  Receipt Date: 20061012
  Transmission Date: 20070319
  Serious: Yes (Death, Life-Threatening)
  Sender: FDA-Public Use
  Company Number: 230409

PATIENT
  Age: 80 Year
  Sex: Male

DRUGS (4)
  1. RITUXAN [Suspect]
     Indication: MICROSCOPIC POLYANGIITIS
     Dosage: 600 MG, QD, INTRAVENOUS
     Route: 042
     Dates: start: 20050624, end: 20050721
  2. STEROID (STEROID NOS) [Suspect]
     Indication: MICROSCOPIC POLYANGIITIS
     Dates: start: 20050518, end: 20051031
  3. CYCLOSPORINE [Concomitant]
  4. VALGANCICLOVIR HYDROCHLORIDE [Concomitant]

REACTIONS (13)
  - ASPERGILLOSIS [None]
  - BLOOD BETA-D-GLUCAN DECREASED [None]
  - C-REACTIVE PROTEIN INCREASED [None]
  - CYTOMEGALOVIRUS CHORIORETINITIS [None]
  - CYTOMEGALOVIRUS INFECTION [None]
  - HAEMATOCRIT DECREASED [None]
  - HAEMOGLOBIN DECREASED [None]
  - LUNG NEOPLASM [None]
  - PLATELET COUNT DECREASED [None]
  - PNEUMONIA [None]
  - PSEUDOMONAS INFECTION [None]
  - SEPSIS [None]
  - WHITE BLOOD CELL COUNT DECREASED [None]
